FAERS Safety Report 9209617 (Version 2)
Quarter: 2013Q2

REPORT INFORMATION
  Report Type: Spontaneous
  Country: DE (occurrence: DE)
  Receive Date: 20130404
  Receipt Date: 20130412
  Transmission Date: 20140414
  Serious: Yes (Other)
  Sender: FDA-Public Use
  Company Number: DE-JNJFOC-20130316162

PATIENT
  Age: 65 Year
  Sex: Male

DRUGS (1)
  1. ZYTIGA [Suspect]
     Indication: PROSTATE CANCER METASTATIC
     Dosage: TREATED SINCE 3.5 YEARS
     Route: 048

REACTIONS (2)
  - Intervertebral disc protrusion [Recovering/Resolving]
  - Prostatic specific antigen increased [Unknown]
